FAERS Safety Report 7284036-1 (Version None)
Quarter: 2011Q1

REPORT INFORMATION
  Report Type: 
  Country: None (occurrence: None)
  Receive Date: 20110131
  Receipt Date: 20110125
  Transmission Date: 20110831
  Serious: Yes (Hospitalization)
  Sender: FDA-Public Use
  Company Number: UTC-004826

PATIENT
  Age: 52 Year
  Sex: Female

DRUGS (1)
  1. TYVASO [Suspect]
     Dosage: 216 MG (54 MG, 4 IN 1 D), INHALATION
     Route: 055
     Dates: start: 20100516

REACTIONS (1)
  - ORTHOPNOEA [None]
